FAERS Safety Report 15755759 (Version 2)
Quarter: 2025Q3

REPORT INFORMATION
  Report Type: Report from Study
  Country: EU (occurrence: EU)
  Receive Date: 20181224
  Receipt Date: 20250716
  Transmission Date: 20251020
  Serious: Yes (Other)
  Sender: AUROBINDO
  Company Number: EU-AUROBINDO-AUR-APL-2018-061930

PATIENT
  Age: 35 Year
  Sex: Male

DRUGS (1)
  1. MODAFINIL [Suspect]
     Active Substance: MODAFINIL
     Indication: Product used for unknown indication
     Route: 065

REACTIONS (7)
  - Coma [Unknown]
  - Loss of consciousness [Unknown]
  - Disorientation [Unknown]
  - Epilepsy [Unknown]
  - Somnolence [Unknown]
  - Headache [Unknown]
  - Poisoning [Unknown]
